FAERS Safety Report 16300665 (Version 2)
Quarter: 2020Q2

REPORT INFORMATION
  Report Type: Report from Study
  Country: NL (occurrence: NL)
  Receive Date: 20190510
  Receipt Date: 20200514
  Transmission Date: 20200713
  Serious: Yes (Congenital Anomaly)
  Sender: FDA-Public Use
  Company Number: NL-TEVA-2019-NL-1046576

PATIENT
  Age: 0 Day
  Sex: Female

DRUGS (2)
  1. COPAXONE [Suspect]
     Active Substance: GLATIRAMER ACETATE
     Indication: MULTIPLE SCLEROSIS
     Route: 064
     Dates: start: 20161202, end: 20180727
  2. TERBINAFINE 250 MG [Concomitant]
     Active Substance: TERBINAFINE
     Dosage: 250 MILLIGRAM DAILY;
     Route: 065

REACTIONS (3)
  - Heart sounds abnormal [Unknown]
  - Ventricular septal defect [Unknown]
  - Foetal exposure during pregnancy [Unknown]

NARRATIVE: CASE EVENT DATE: 20190330
